FAERS Safety Report 14401358 (Version 1)
Quarter: 2018Q1

REPORT INFORMATION
  Report Type: Spontaneous
  Country: NO (occurrence: NO)
  Receive Date: 20180117
  Receipt Date: 20180117
  Transmission Date: 20180509
  Serious: Yes (Death)
  Sender: FDA-Public Use
  Company Number: NO-BAYER-2018-007792

PATIENT
  Age: 73 Year
  Sex: Male

DRUGS (10)
  1. VISIPAQUE [IODIXANOL] [Concomitant]
     Indication: ANGIOGRAM
     Dosage: 220 ML, UNK
     Route: 051
     Dates: start: 20170702, end: 20170702
  2. GLYCERYL TRINITRATE [Concomitant]
     Active Substance: NITROGLYCERIN
     Dosage: UNK
     Route: 060
  3. ASPIRIN. [Suspect]
     Active Substance: ASPIRIN
     Dosage: 300 MG, UNK
     Dates: start: 20170702, end: 20170702
  4. MORPHINE [Concomitant]
     Active Substance: MORPHINE
  5. PLAVIX [Suspect]
     Active Substance: CLOPIDOGREL BISULFATE
     Indication: MYOCARDIAL INFARCTION
     Dosage: 300 MG, UNK
     Dates: start: 20170702, end: 20170702
  6. METALYSE [Suspect]
     Active Substance: TENECTEPLASE
     Indication: MYOCARDIAL INFARCTION
     Dosage: 10000 IU, UNK
     Route: 051
     Dates: start: 20170702, end: 20170702
  7. ACETYLSALICYLIC ACID [Concomitant]
     Active Substance: ASPIRIN
     Indication: PRODUCT USED FOR UNKNOWN INDICATION
     Dosage: UNK
     Route: 048
  8. HEPARIN [Suspect]
     Active Substance: HEPARIN SODIUM
     Indication: PERCUTANEOUS CORONARY INTERVENTION
     Dosage: 5000 IU, UNK
     Route: 051
     Dates: start: 20170702, end: 20170702
  9. KLEXANE [Suspect]
     Active Substance: ENOXAPARIN
     Indication: MYOCARDIAL INFARCTION
     Dosage: 130 MG, UNK (30 MG IV + 100 MG SC)
     Route: 051
     Dates: start: 20170702, end: 20170702
  10. METFORMIN [Concomitant]
     Active Substance: METFORMIN HYDROCHLORIDE
     Indication: TYPE 2 DIABETES MELLITUS
     Route: 048

REACTIONS (1)
  - Cerebral haemorrhage [Fatal]

NARRATIVE: CASE EVENT DATE: 20170702
